FAERS Safety Report 7148365-4 (Version None)
Quarter: 2010Q4

REPORT INFORMATION
  Report Type: 
  Country: None (occurrence: None)
  Receive Date: 20101209
  Receipt Date: 20101126
  Transmission Date: 20110411
  Serious: Yes (Hospitalization)
  Sender: FDA-Public Use
  Company Number: DE-RANBAXY-2010R1-39930

PATIENT
  Age: 29 Year
  Sex: Female

DRUGS (5)
  1. CIPROFLOXACIN [Suspect]
     Indication: ABSCESS
     Dosage: 400 MG, UNK
     Route: 042
     Dates: start: 20100806, end: 20100819
  2. AZATHIOPRINE [Suspect]
     Indication: CROHN'S DISEASE
     Dosage: 150 MG, UNK
     Route: 048
     Dates: start: 20101006, end: 20101028
  3. METRONIDAZOLE [Concomitant]
     Indication: ABSCESS
     Dosage: 100 ML, UNK
     Route: 042
     Dates: start: 20100806, end: 20100819
  4. PREDNISOLONE [Concomitant]
     Indication: CROHN'S DISEASE
     Dosage: 10 MG, UNK
     Route: 048
     Dates: start: 20100601, end: 20101005
  5. VALORON [Concomitant]
     Indication: PROCTALGIA
     Dosage: 20 GTT, UNK
     Route: 048
     Dates: start: 20100801, end: 20101028

REACTIONS (1)
  - GASTROENTERITIS CLOSTRIDIAL [None]
